FAERS Safety Report 8455205-X (Version None)
Quarter: 2012Q2

REPORT INFORMATION
  Report Type: 
  Country: None (occurrence: None)
  Receive Date: 20120621
  Receipt Date: 20120612
  Transmission Date: 20120825
  Serious: Yes (Life-Threatening, Hospitalization, Disabling, Other)
  Sender: FDA-Public Use
  Company Number: JP-ASTELLAS-2012JP004227

PATIENT
  Sex: Male
  Weight: 62.1 kg

DRUGS (25)
  1. PREDNISOLONE [Suspect]
     Dosage: UNK MG, UID/QD
     Route: 048
     Dates: end: 20100709
  2. NIZATIDINE [Concomitant]
     Indication: PROPHYLAXIS
     Dosage: 150 MG, BID
     Route: 048
     Dates: start: 20100429, end: 20100521
  3. UROKINASE [Concomitant]
     Indication: VENOUS THROMBOSIS LIMB
  4. PROGRAF [Suspect]
     Dosage: 3 MG, UID/QD
     Route: 048
     Dates: start: 20100513
  5. CODEINE PHOSPHATE [Concomitant]
     Indication: INTERSTITIAL LUNG DISEASE
     Dosage: 20 MG, PRN
     Route: 048
     Dates: start: 20100417
  6. HEPARIN CALCIUM [Concomitant]
     Indication: VENOUS THROMBOSIS LIMB
  7. PREDNISOLONE [Suspect]
     Dosage: 30 MG, UNKNOWN/D
     Route: 048
  8. FLAVERIC [Concomitant]
     Indication: INTERSTITIAL LUNG DISEASE
     Dosage: 20 MG, TID
     Route: 048
     Dates: start: 20100416
  9. LASIX [Concomitant]
     Indication: PULMONARY EMBOLISM
     Dosage: 20 MG, UID/QD
     Route: 048
     Dates: start: 20101203, end: 20101217
  10. MUCODYNE [Concomitant]
     Indication: INTERSTITIAL LUNG DISEASE
     Dosage: UNK MG, TID
     Route: 048
     Dates: start: 20101220
  11. UROKINASE [Concomitant]
     Indication: PULMONARY EMBOLISM
     Dosage: 723 IU, UID/QD
     Route: 041
  12. WARFARIN SODIUM [Concomitant]
     Indication: VENOUS THROMBOSIS LIMB
  13. PREDNISOLONE [Suspect]
     Indication: INTERSTITIAL LUNG DISEASE
     Dosage: 30 MG, UID/QD
     Route: 048
     Dates: start: 20100414
  14. GASTROM [Concomitant]
     Indication: PROPHYLAXIS
     Dosage: 1.5 G, BID
     Route: 048
     Dates: start: 20100521
  15. LEVOFLOXACIN [Concomitant]
     Indication: UPPER RESPIRATORY TRACT INFLAMMATION
     Dosage: 500 MG, UID/QD
     Route: 048
     Dates: start: 20101105, end: 20101111
  16. HEPARIN CALCIUM [Concomitant]
     Indication: PULMONARY EMBOLISM
     Dosage: 15000 IU, UID/QD
     Route: 041
     Dates: start: 20101221, end: 20101225
  17. PROGRAF [Suspect]
     Indication: INTERSTITIAL LUNG DISEASE
     Dosage: 1 MG, UID/QD
     Route: 048
     Dates: start: 20100430, end: 20100506
  18. PROGRAF [Suspect]
     Dosage: 2 MG, UID/QD
     Route: 048
     Dates: start: 20100507, end: 20100512
  19. BETAMETHASONE [Suspect]
     Dosage: UNK
     Route: 048
     Dates: start: 20100709
  20. COTRIM [Concomitant]
     Indication: PROPHYLAXIS
     Dosage: 1 DF, BID
     Route: 048
     Dates: start: 20100417
  21. MUCOSOLVAN [Concomitant]
     Indication: INTERSTITIAL LUNG DISEASE
     Dosage: 15 MG, TID
     Route: 048
     Dates: start: 20100417
  22. BETAMETHASONE [Suspect]
     Indication: INTERSTITIAL LUNG DISEASE
     Dosage: 3 MG, UNKNOWN/D
     Route: 048
  23. PREDNISOLONE [Suspect]
     Dosage: 27.5 MG, UNKNOWN/D
     Route: 048
  24. MAGLAX [Concomitant]
     Indication: CONSTIPATION
     Dosage: 500 MG, TID
     Route: 048
     Dates: start: 20100427
  25. WARFARIN SODIUM [Concomitant]
     Indication: PULMONARY EMBOLISM
     Dosage: 3 MG, UID/QD
     Route: 048
     Dates: start: 20101227

REACTIONS (4)
  - PULMONARY ARTERY THROMBOSIS [None]
  - UPPER RESPIRATORY TRACT INFLAMMATION [None]
  - DRUG INEFFECTIVE FOR UNAPPROVED INDICATION [None]
  - INTERSTITIAL LUNG DISEASE [None]
